FAERS Safety Report 10501114 (Version 1)
Quarter: 2014Q4

REPORT INFORMATION
  Report Type: Spontaneous
  Country: US (occurrence: US)
  Receive Date: 20141007
  Receipt Date: 20141007
  Transmission Date: 20150528
  Serious: Yes (Hospitalization)
  Sender: FDA-Public Use
  Company Number: US-JNJFOC-20141000396

PATIENT
  Age: 15 Year
  Sex: Female
  Weight: 54.43 kg

DRUGS (1)
  1. TYLENOL [Suspect]
     Active Substance: ACETAMINOPHEN
     Indication: PRODUCT USED FOR UNKNOWN INDICATION
     Dosage: 10 CAPLETS TAKEN ONCE
     Route: 048
     Dates: start: 20140929, end: 20140929

REACTIONS (2)
  - Intentional overdose [Unknown]
  - Headache [Recovered/Resolved]

NARRATIVE: CASE EVENT DATE: 20140929
